FAERS Safety Report 5952157-9 (Version None)
Quarter: 2008Q4

REPORT INFORMATION
  Report Type: 
  Country: None (occurrence: None)
  Receive Date: 20081113
  Receipt Date: 20080722
  Transmission Date: 20090506
  Serious: No
  Sender: FDA-Public Use
  Company Number: A0738862A

PATIENT
  Age: 88 Year
  Sex: Female

DRUGS (9)
  1. CARVEDILOL [Suspect]
     Indication: HYPERTENSION
     Dosage: 12.5MG TWICE PER DAY
     Route: 048
     Dates: start: 20080416, end: 20080524
  2. AMLODIPINE [Concomitant]
  3. HYDROCHLOROTHIAZIDE [Concomitant]
  4. PREDNISONE TAB [Concomitant]
  5. ARIMIDEX [Concomitant]
  6. NEXIUM [Concomitant]
  7. CALCIUM [Concomitant]
  8. POTASSIUM CHLORIDE [Concomitant]
  9. CENTRUM SILVER [Concomitant]

REACTIONS (3)
  - DISORIENTATION [None]
  - DRUG ADMINISTRATION ERROR [None]
  - DRY MOUTH [None]
